FAERS Safety Report 11287448 (Version 1)
Quarter: 2015Q2

REPORT INFORMATION
  Report Type: Spontaneous
  Country: US (occurrence: None)
  Receive Date: 20150623
  Receipt Date: 20150623
  Transmission Date: 20150821
  Serious: Yes (Other)
  Sender: FDA-Public Use
  Company Number: RB-72576-2015

PATIENT
  Age: 62 Year
  Sex: Female

DRUGS (1)
  1. DEXTROMETHORPHAN\GUAIFENESIN [Suspect]
     Active Substance: DEXTROMETHORPHAN\GUAIFENESIN
     Indication: PRODUCT USED FOR UNKNOWN INDICATION
     Dosage: (1200 MG TOTAL, TOOK 1 TABLET (TOTAL) ON 19-JAN-2015 AT 05:00PM UNKNOWN)
     Dates: start: 20150119

REACTIONS (5)
  - Hallucination [None]
  - Burning sensation [None]
  - Diarrhoea [None]
  - Nausea [None]
  - Dizziness [None]

NARRATIVE: CASE EVENT DATE: 20150119
